FAERS Safety Report 6528744-6 (Version None)
Quarter: 2009Q4

REPORT INFORMATION
  Report Type: 
  Country: None (occurrence: None)
  Receive Date: 20091222
  Receipt Date: 20091104
  Transmission Date: 20100525
  Serious: No
  Sender: FDA-Public Use
  Company Number: ALL1-2009-03501

PATIENT
  Age: 28 Year
  Sex: Female
  Weight: 68 kg

DRUGS (4)
  1. VYVANSE [Suspect]
     Indication: ATTENTION DEFICIT/HYPERACTIVITY DISORDER
     Dosage: 30 MG, 1X/DAY:QD, ORAL ; 1X/DAY:QD, ORAL
     Route: 048
     Dates: start: 20080101, end: 20090101
  2. VYVANSE [Suspect]
     Indication: ATTENTION DEFICIT/HYPERACTIVITY DISORDER
     Dosage: 30 MG, 1X/DAY:QD, ORAL ; 1X/DAY:QD, ORAL
     Route: 048
     Dates: start: 20090101, end: 20090101
  3. ATIVAN [Concomitant]
  4. LEXAPRO [Concomitant]

REACTIONS (4)
  - DYSKINESIA [None]
  - HYPERHIDROSIS [None]
  - SKIN ODOUR ABNORMAL [None]
  - WRONG TECHNIQUE IN DRUG USAGE PROCESS [None]
